FAERS Safety Report 8355610-6 (Version None)
Quarter: 2012Q2

REPORT INFORMATION
  Report Type: 
  Country: None (occurrence: None)
  Receive Date: 20120514
  Receipt Date: 20120504
  Transmission Date: 20120825
  Serious: Yes (Life-Threatening, Hospitalization, Other)
  Sender: FDA-Public Use
  Company Number: FR-BIOGENIDEC-2012BI006643

PATIENT
  Age: 53 Year
  Sex: Female

DRUGS (8)
  1. TYSABRI [Suspect]
     Route: 042
     Dates: start: 20091001, end: 20120116
  2. ALFUZOSIN HCL [Concomitant]
     Route: 048
  3. LORAZEPAM [Concomitant]
     Route: 048
  4. TYSABRI [Suspect]
     Indication: MULTIPLE SCLEROSIS
     Route: 042
     Dates: start: 20080602, end: 20090501
  5. ZOPLICONE [Concomitant]
     Route: 048
  6. ESCITALOPRAM [Concomitant]
     Dates: start: 20090101
  7. CORTICOSTEROID BOLUS [Concomitant]
     Indication: MULTIPLE SCLEROSIS
     Dates: start: 20120201
  8. MIANSERINE [Concomitant]
     Route: 048

REACTIONS (4)
  - RESPIRATORY ARREST [None]
  - COMA [None]
  - PANCYTOPENIA [None]
  - GRAND MAL CONVULSION [None]
